FAERS Safety Report 4451205-5 (Version None)
Quarter: 2004Q3

REPORT INFORMATION
  Report Type: 
  Country: None (occurrence: None)
  Receive Date: 20040914
  Receipt Date: 20040830
  Transmission Date: 20050211
  Serious: Yes (Death, Hospitalization)
  Sender: FDA-Public Use
  Company Number: WAES 0408USA01627

PATIENT
  Age: 68 Year
  Sex: Female

DRUGS (7)
  1. COZAAR [Suspect]
     Indication: HYPERTENSION
     Dosage: 50 MG/DAILY PO
     Route: 048
     Dates: start: 20020226, end: 20030929
  2. BASEN [Concomitant]
  3. HUMALOG [Concomitant]
  4. JUVELA NICOTINATE [Concomitant]
  5. CYANOCOBALAMIN [Concomitant]
  6. NORVASC [Concomitant]
  7. PENFILL R [Concomitant]

REACTIONS (1)
  - VASCULAR PURPURA [None]
